FAERS Safety Report 10156603 (Version 1)
Quarter: 2014Q2

REPORT INFORMATION
  Report Type: Report from Study
  Country: GB (occurrence: GB)
  Receive Date: 20140507
  Receipt Date: 20140507
  Transmission Date: 20141212
  Serious: Yes (Other)
  Sender: FDA-Public Use
  Company Number: GB-ACCORD-023509

PATIENT
  Age: 69 Year
  Sex: Female

DRUGS (10)
  1. LETROZOLE [Suspect]
     Indication: PRODUCT USED FOR UNKNOWN INDICATION
     Route: 048
     Dates: start: 20100817, end: 20120620
  2. FUROSEMIDE [Suspect]
     Indication: PRODUCT USED FOR UNKNOWN INDICATION
     Route: 048
     Dates: start: 1998
  3. AMLODIPINE [Suspect]
     Indication: PRODUCT USED FOR UNKNOWN INDICATION
     Route: 048
     Dates: start: 1998
  4. METFORMIN [Suspect]
     Indication: PRODUCT USED FOR UNKNOWN INDICATION
     Route: 048
     Dates: start: 20100413
  5. IMATINIB/IMATINIB MESILATE [Concomitant]
     Indication: CHRONIC MYELOID LEUKAEMIA
  6. BETAHISTINE [Suspect]
     Indication: PRODUCT USED FOR UNKNOWN INDICATION
     Route: 048
     Dates: start: 1991
  7. LOSARTAN [Suspect]
     Indication: PRODUCT USED FOR UNKNOWN INDICATION
     Route: 048
     Dates: start: 1998
  8. CALCICHEW [Suspect]
     Indication: PRODUCT USED FOR UNKNOWN INDICATION
     Route: 048
     Dates: start: 20100817
  9. RAMIPRIL [Suspect]
     Indication: PRODUCT USED FOR UNKNOWN INDICATION
     Route: 048
     Dates: start: 1998
  10. BONVIVA [Suspect]
     Indication: METASTATIC PAIN
     Route: 065
     Dates: start: 20100828, end: 20120620

REACTIONS (1)
  - Thrombocytosis [Not Recovered/Not Resolved]
